FAERS Safety Report 4569385-X (Version None)
Quarter: 2005Q1

REPORT INFORMATION
  Report Type: 
  Country: None (occurrence: None)
  Receive Date: 20050203
  Receipt Date: 20050124
  Transmission Date: 20050727
  Serious: Yes (Hospitalization)
  Sender: FDA-Public Use
  Company Number: FR-ROCHE-393366

PATIENT
  Age: 31 Year
  Sex: Male

DRUGS (8)
  1. CELLCEPT [Suspect]
     Route: 048
  2. GLEEVEC [Suspect]
     Route: 048
     Dates: start: 20030401
  3. GLEEVEC [Suspect]
     Route: 048
  4. ATORVASTATIN CALCIUM [Suspect]
     Route: 048
  5. DEROXAT [Suspect]
     Indication: DRUG USE FOR UNKNOWN INDICATION
     Route: 048
  6. NEORAL [Suspect]
     Indication: DRUG USE FOR UNKNOWN INDICATION
     Route: 048
  7. NEORAL [Suspect]
     Dosage: LOWER DOSAGE.
     Route: 048
  8. NEORAL [Suspect]
     Route: 048

REACTIONS (5)
  - BLOOD ALKALINE PHOSPHATASE INCREASED [None]
  - BLOOD CREATININE INCREASED [None]
  - DRUG LEVEL INCREASED [None]
  - GAMMA-GLUTAMYLTRANSFERASE INCREASED [None]
  - HYPERURICAEMIA [None]
